FAERS Safety Report 12256896 (Version 1)
Quarter: 2016Q2

REPORT INFORMATION
  Report Type: Spontaneous
  Country: US (occurrence: None)
  Receive Date: 20160411
  Receipt Date: 20160411
  Transmission Date: 20160815
  Serious: Yes (Other)
  Sender: FDA-Public Use
  Company Number: None

PATIENT
  Age: 68 Year
  Sex: Female
  Weight: 81.65 kg

DRUGS (6)
  1. OSTIO BI FLEX [Concomitant]
  2. HYDROCHLOROTHIAZIDE. [Concomitant]
     Active Substance: HYDROCHLOROTHIAZIDE
  3. ALLERGY SHOTS [Concomitant]
     Active Substance: UNSPECIFIED INGREDIENT
  4. ADVIL [Concomitant]
     Active Substance: IBUPROFEN
  5. LISINOPRIL, 10 MG ACCORD [Suspect]
     Active Substance: LISINOPRIL
     Indication: HYPERTENSION
     Route: 048
     Dates: start: 20160310, end: 20160331
  6. LISINOPRIL, 5 MG ACCORD [Suspect]
     Active Substance: LISINOPRIL
     Indication: HYPERTENSION
     Dosage: 1 TABLET IN THE MORNING TAKEN BY MOUTH
     Route: 048
     Dates: start: 20160310, end: 20160331

REACTIONS (4)
  - Oedema [None]
  - Product quality issue [None]
  - Peripheral swelling [None]
  - Product substitution issue [None]

NARRATIVE: CASE EVENT DATE: 20160331
